FAERS Safety Report 8111091 (Version 2)
Quarter: 2014Q4

REPORT INFORMATION
  Report Type: Spontaneous
  Country: US (occurrence: US)
  Receive Date: 20110829
  Receipt Date: 20141224
  Transmission Date: 20150529
  Serious: Yes (Hospitalization, Other)
  Sender: FDA-Public Use
  Company Number: US-ELI_LILLY_AND_COMPANY-US201108006398

PATIENT
  Sex: Male

DRUGS (10)
  1. HUMULIN 70/30 [Suspect]
     Active Substance: INSULIN HUMAN
     Indication: DIABETES MELLITUS
     Dosage: 118 U, EACH MORNING
  2. IMODIUM [Concomitant]
     Active Substance: LOPERAMIDE HYDROCHLORIDE
  3. METOPROLOL [Concomitant]
     Active Substance: METOPROLOL
  4. HUMULIN N [Suspect]
     Active Substance: INSULIN HUMAN
     Dosage: 90 U, EACH EVENING
  5. ASPIRIN. [Concomitant]
     Active Substance: ASPIRIN
  6. TRAMADOL [Concomitant]
     Active Substance: TRAMADOL
  7. LASIX [Concomitant]
     Active Substance: FUROSEMIDE
  8. INSULIN HUMAN [Suspect]
     Active Substance: INSULIN HUMAN
     Indication: TYPE 2 DIABETES MELLITUS
     Dosage: 60 U, QD
     Route: 065
     Dates: start: 2011
  9. LOSARTAN [Concomitant]
     Active Substance: LOSARTAN
     Dosage: 25 MG, UNK
  10. HUMULIN R [Suspect]
     Active Substance: INSULIN HUMAN
     Indication: TYPE 2 DIABETES MELLITUS
     Dosage: UNK
     Route: 065

REACTIONS (7)
  - Colorectal cancer [Unknown]
  - Blindness [Not Recovered/Not Resolved]
  - Optic nerve injury [Not Recovered/Not Resolved]
  - Visual acuity reduced [Not Recovered/Not Resolved]
  - Glaucoma [Not Recovered/Not Resolved]
  - Insulin resistance [Not Recovered/Not Resolved]
  - Blood glucose increased [Unknown]
